FAERS Safety Report 5811292-6 (Version None)
Quarter: 2008Q3

REPORT INFORMATION
  Report Type: 
  Country: None (occurrence: None)
  Receive Date: 20080710
  Receipt Date: 20080703
  Transmission Date: 20090109
  Serious: Yes (Hospitalization)
  Sender: FDA-Public Use
  Company Number: 2008SP013359

PATIENT
  Sex: Male

DRUGS (1)
  1. VIRAFERONPEG (PEGINTERFERON ALFA-2B) (PEGINTERFERON ALFA-2B) [Suspect]
     Indication: HEPATITIS C
     Dosage: SC
     Route: 058

REACTIONS (4)
  - DELUSION [None]
  - HYPERHIDROSIS [None]
  - MEDICATION ERROR [None]
  - PYREXIA [None]
